FAERS Safety Report 5467324-0 (Version None)
Quarter: 2007Q3

REPORT INFORMATION
  Report Type: 
  Country: None (occurrence: None)
  Receive Date: 20070925
  Receipt Date: 20070913
  Transmission Date: 20080115
  Serious: Yes (Life-Threatening, Hospitalization)
  Sender: FDA-Public Use
  Company Number: JP-PFIZER INC-2007070739

PATIENT
  Sex: Male
  Weight: 48 kg

DRUGS (4)
  1. ZYVOX [Suspect]
     Indication: STAPHYLOCOCCAL INFECTION
     Route: 042
     Dates: start: 20070718, end: 20070728
  2. ZYVOX [Suspect]
     Indication: PNEUMONIA STAPHYLOCOCCAL
  3. DEPAKENE [Suspect]
     Indication: CONVULSION
     Dosage: DAILY DOSE:20ML-FREQ:FREQUENCY:BID
     Route: 048
     Dates: start: 20070522, end: 20070820
  4. TARGOCID [Concomitant]
     Route: 042
     Dates: start: 20070711, end: 20070714

REACTIONS (3)
  - DISSEMINATED INTRAVASCULAR COAGULATION [None]
  - HAEMATOCHEZIA [None]
  - HAEMORRHAGIC DIATHESIS [None]
